FAERS Safety Report 8360787-2 (Version None)
Quarter: 2012Q2

REPORT INFORMATION
  Report Type: 
  Country: None (occurrence: None)
  Receive Date: 20120515
  Receipt Date: 20120511
  Transmission Date: 20120825
  Serious: Yes (Other)
  Sender: FDA-Public Use
  Company Number: FR-PFIZER INC-2012115309

PATIENT
  Age: 36 Year
  Sex: Male

DRUGS (3)
  1. IRINOTECAN HCL [Suspect]
     Indication: GLIOBLASTOMA
     Dosage: 188 MG, ONCE EVERY 3 WEEKS
     Route: 042
     Dates: start: 20110721
  2. SOLU-MEDROL [Suspect]
     Dosage: 88 MG, ONCE EVERY 3 WEEKS
     Route: 042
     Dates: start: 20110721
  3. AVASTIN [Suspect]
     Indication: GLIOBLASTOMA
     Dosage: 875 MG, ONCE EVERY 3 WEEKS
     Route: 042
     Dates: start: 20110721, end: 20110721

REACTIONS (1)
  - TONGUE GEOGRAPHIC [None]
